FAERS Safety Report 5271023-8 (Version None)
Quarter: 2007Q1

REPORT INFORMATION
  Report Type: 
  Country: None (occurrence: None)
  Receive Date: 20061214
  Receipt Date: 20060828
  Transmission Date: 20070707
  Serious: Yes (Hospitalization, Other)
  Sender: FDA-Public Use
  Company Number: 2005137148

PATIENT
  Age: 74 Year
  Sex: Male
  Weight: 89.8122 kg

DRUGS (5)
  1. BEXTRA [Suspect]
     Dosage: 20 MG (20 MG, 1 IN 1 D); ORAL
     Route: 048
     Dates: start: 20030624
  2. AMIODARONE HCL [Concomitant]
  3. ASPIRIN [Concomitant]
  4. CARDIZEM CD [Concomitant]
  5. ZESTRIL [Concomitant]

REACTIONS (1)
  - MYOCARDIAL INFARCTION [None]
